FAERS Safety Report 7774494-8 (Version None)
Quarter: 2011Q3

REPORT INFORMATION
  Report Type: 
  Country: None (occurrence: None)
  Receive Date: 20110923
  Receipt Date: 20110912
  Transmission Date: 20111222
  Serious: Yes (Other)
  Sender: FDA-Public Use
  Company Number: US-ROCHE-798169

PATIENT
  Sex: Male
  Weight: 90.7 kg

DRUGS (1)
  1. ISOTRETINOIN [Suspect]
     Indication: ACNE
     Dosage: DOSE- 40
     Route: 048
     Dates: start: 20110401, end: 20110701

REACTIONS (1)
  - STAPHYLOCOCCAL INFECTION [None]
